FAERS Safety Report 13388183 (Version 1)
Quarter: 2017Q1

REPORT INFORMATION
  Report Type: Spontaneous
  Country: US (occurrence: US)
  Receive Date: 20170330
  Receipt Date: 20170330
  Transmission Date: 20170429
  Serious: No
  Sender: FDA-Public Use
  Company Number: US-GLENMARK PHARMACEUTICALS-2016GMK022658

PATIENT

DRUGS (5)
  1. LIVALO [Concomitant]
     Active Substance: PITAVASTATIN CALCIUM
     Indication: PRODUCT USED FOR UNKNOWN INDICATION
     Dosage: UNK
  2. VASELINE                           /00473501/ [Concomitant]
     Indication: PRODUCT USED FOR UNKNOWN INDICATION
     Dosage: UNK
  3. IMIQUIMOD. [Suspect]
     Active Substance: IMIQUIMOD
     Indication: ACTINIC KERATOSIS
     Dosage: APPLY IT ONCE DAILY ON FOREHEAD
     Route: 061
     Dates: start: 20160412, end: 20160512
  4. AQUAPHOR [Concomitant]
     Active Substance: PETROLATUM
     Indication: PRODUCT USED FOR UNKNOWN INDICATION
     Dosage: UNK
  5. VITAMINS [Concomitant]
     Active Substance: VITAMINS
     Indication: PRODUCT USED FOR UNKNOWN INDICATION
     Dosage: UNK

REACTIONS (10)
  - Application site burn [Recovering/Resolving]
  - Application site erythema [Not Recovered/Not Resolved]
  - Application site discharge [Recovering/Resolving]
  - Application site pruritus [Recovering/Resolving]
  - Application site exfoliation [Recovering/Resolving]
  - Fatigue [Recovering/Resolving]
  - Application site swelling [Recovering/Resolving]
  - Application site scab [Recovering/Resolving]
  - Application site haemorrhage [Recovering/Resolving]
  - Pyrexia [Recovered/Resolved]

NARRATIVE: CASE EVENT DATE: 201604
